FAERS Safety Report 7285944-8 (Version None)
Quarter: 2011Q1

REPORT INFORMATION
  Report Type: 
  Country: None (occurrence: None)
  Receive Date: 20110210
  Receipt Date: 20110204
  Transmission Date: 20110831
  Serious: Yes (Life-Threatening, Hospitalization)
  Sender: FDA-Public Use
  Company Number: GB-MERCK-1005GBR00094

PATIENT
  Age: 59 Year
  Sex: Male

DRUGS (19)
  1. ZOCOR [Suspect]
     Route: 048
  2. ALFACALCIDOL [Concomitant]
     Route: 065
  3. EPOETIN [Concomitant]
     Route: 065
  4. FLOXACILLIN [Concomitant]
     Indication: ARTHRITIS BACTERIAL
     Route: 065
  5. IRON SUCROSE [Concomitant]
     Route: 065
  6. GLICLAZIDE [Concomitant]
     Indication: DIABETES MELLITUS
     Route: 065
  7. GENTAMICIN [Concomitant]
     Route: 065
  8. CEFTRIAXONE SODIUM [Concomitant]
     Route: 065
  9. FOLIC ACID [Concomitant]
     Route: 065
  10. FUSIDIC ACID [Suspect]
     Indication: ARTHRITIS BACTERIAL
     Route: 065
  11. CLOPIDOGREL BISULFATE [Concomitant]
     Route: 065
  12. DIPYRIDAMOLE [Concomitant]
     Route: 065
  13. LANSOPRAZOLE [Concomitant]
     Route: 065
  14. CLARITHROMYCIN [Concomitant]
     Route: 065
  15. ALLOPURINOL [Concomitant]
     Route: 065
  16. CALCIUM CARBONATE [Concomitant]
     Route: 065
  17. ATENOLOL [Concomitant]
     Route: 065
  18. FLOXACILLIN [Concomitant]
     Indication: OSTEOMYELITIS
     Route: 065
  19. ASCORBIC ACID AND VITAMIN B (UNSPECIFIED) [Concomitant]
     Route: 065

REACTIONS (2)
  - RHABDOMYOLYSIS [None]
  - DRUG INTERACTION [None]
